FAERS Safety Report 5139331-9 (Version None)
Quarter: 2006Q4

REPORT INFORMATION
  Report Type: 
  Country: None (occurrence: None)
  Receive Date: 20061024
  Receipt Date: 20061007
  Transmission Date: 20070319
  Serious: Yes (Other)
  Sender: FDA-Public Use
  Company Number: 2006BI015165

PATIENT
  Age: 31 Year
  Sex: Female

DRUGS (1)
  1. AVONEX [Suspect]
     Indication: MULTIPLE SCLEROSIS
     Dosage: 30 UG; QW; IM
     Route: 030
     Dates: start: 20061007, end: 20061007

REACTIONS (5)
  - DRUG HYPERSENSITIVITY [None]
  - HYPOAESTHESIA [None]
  - PYREXIA [None]
  - TREMOR [None]
  - VOMITING [None]
